FAERS Safety Report 15736343 (Version 1)
Quarter: 2018Q4

REPORT INFORMATION
  Report Type: Spontaneous
  Country: US (occurrence: US)
  Receive Date: 20181218
  Receipt Date: 20181218
  Transmission Date: 20190205
  Serious: Yes (Hospitalization)
  Sender: FDA-Public Use
  Company Number: None

PATIENT
  Age: 80 Year
  Sex: Female

DRUGS (6)
  1. LEFLUNAMIDE TAB 10MG [Concomitant]
  2. CARVEDILOL TAB 12.5MG [Concomitant]
  3. ORENCIA [Suspect]
     Active Substance: ABATACEPT
     Indication: RHEUMATOID ARTHRITIS
     Dosage: ?          OTHER FREQUENCY:ONCE A WEEK;?
     Route: 058
  4. PANTOPRAZOLE TAB 40MG [Concomitant]
  5. CLOPIDOGREL TAB 75MG [Concomitant]
  6. DILTIAZEM CAP 360MG CD [Concomitant]

REACTIONS (2)
  - Therapy cessation [None]
  - Surgery [None]

NARRATIVE: CASE EVENT DATE: 20181201
